FAERS Safety Report 9733683 (Version 2)
Quarter: 2014Q1

REPORT INFORMATION
  Report Type: Report from Study
  Country: US (occurrence: US)
  Receive Date: 20131205
  Receipt Date: 20140217
  Transmission Date: 20141002
  Serious: Yes (Death, Life-Threatening, Hospitalization, Other)
  Sender: FDA-Public Use
  Company Number: PHEH2013US025048

PATIENT
  Age: 64 Year
  Sex: Male
  Weight: 38.4 kg

DRUGS (3)
  1. GLEEVEC [Suspect]
     Indication: CHRONIC MYELOID LEUKAEMIA
     Dosage: 400 MG, QD
     Route: 048
     Dates: end: 20130926
  2. SPRYCEL//DASATINIB [Suspect]
     Indication: CHRONIC MYELOID LEUKAEMIA
     Dosage: 100 MG, QD
     Route: 048
     Dates: start: 20130926, end: 20131128
  3. ANTIDEPRESSANTS [Concomitant]
     Dosage: UNK UKN, UNK

REACTIONS (9)
  - Death [Fatal]
  - Coma [Unknown]
  - Foaming at mouth [Unknown]
  - Loss of consciousness [Unknown]
  - Convulsion [Unknown]
  - Blast crisis in myelogenous leukaemia [Unknown]
  - Hypoglycaemia [Unknown]
  - Hypernatraemia [Unknown]
  - Hypocalcaemia [Unknown]
